FAERS Safety Report 7525064-8 (Version None)
Quarter: 2011Q2

REPORT INFORMATION
  Report Type: 
  Country: None (occurrence: None)
  Receive Date: 20110606
  Receipt Date: 20110531
  Transmission Date: 20111010
  Serious: Yes (Death)
  Sender: FDA-Public Use
  Company Number: US-CELGENEUS-163-21880-11043439

PATIENT
  Sex: Male

DRUGS (7)
  1. LOSARTAN POTASSIUM [Concomitant]
     Indication: BLOOD PRESSURE
     Route: 048
     Dates: end: 20110405
  2. REVLIMID [Suspect]
     Indication: MYELODYSPLASTIC SYNDROME
     Dosage: 2.5 MILLIGRAM
     Route: 048
     Dates: start: 20100804, end: 20110405
  3. ULORIC [Concomitant]
     Indication: GOUT
     Route: 048
     Dates: end: 20110405
  4. NIFEDIPINE [Concomitant]
     Indication: BLOOD PRESSURE
     Route: 048
     Dates: end: 20110405
  5. SYNTHROID [Concomitant]
     Indication: HYPOTHYROIDISM
     Route: 048
     Dates: end: 20110405
  6. CARDURA [Concomitant]
     Route: 048
     Dates: end: 20110405
  7. FLOMAX [Concomitant]
     Route: 048
     Dates: end: 20110405

REACTIONS (1)
  - SUDDEN DEATH [None]
